FAERS Safety Report 15360138 (Version 1)
Quarter: 2018Q3

REPORT INFORMATION
  Report Type: Spontaneous
  Country: US (occurrence: US)
  Receive Date: 20180831
  Receipt Date: 20180831
  Transmission Date: 20181010
  Serious: Yes (Hospitalization, Other)
  Sender: FDA-Public Use
  Company Number: None

PATIENT
  Age: 38 Year
  Sex: Female
  Weight: 54 kg

DRUGS (1)
  1. SULFAMETHOXAZOLE?TRIMETHOPRIM 800?160MG [Suspect]
     Active Substance: SULFAMETHOXAZOLE\TRIMETHOPRIM
     Indication: INFECTED CYST
     Dosage: ?          QUANTITY:1 TABLET(S);?
     Route: 048
     Dates: start: 20180816, end: 20180823

REACTIONS (8)
  - Irritability [None]
  - Rash pruritic [None]
  - Decreased appetite [None]
  - Pain [None]
  - Movement disorder [None]
  - Quality of life decreased [None]
  - Depression [None]
  - Nausea [None]

NARRATIVE: CASE EVENT DATE: 20180823
